FAERS Safety Report 10301109 (Version 1)
Quarter: 2014Q3

REPORT INFORMATION
  Report Type: Spontaneous
  Country: US (occurrence: None)
  Receive Date: 20140708
  Receipt Date: 20140708
  Transmission Date: 20150326
  Serious: No
  Sender: FDA-Public Use
  Company Number: None

PATIENT

DRUGS (1)
  1. CLINDAMYCIN IN 5 PERCENT DEXTROSE [Suspect]
     Active Substance: CLINDAMYCIN\CLINDAMYCIN PHOSPHATE
     Route: 042
     Dates: start: 20140630, end: 20140630

REACTIONS (2)
  - Medical device complication [None]
  - Physical product label issue [None]

NARRATIVE: CASE EVENT DATE: 20140630
